FAERS Safety Report 13187842 (Version 2)
Quarter: 2017Q1

REPORT INFORMATION
  Report Type: Report from Study
  Country: None (occurrence: US)
  Receive Date: 20170206
  Receipt Date: 20170207
  Transmission Date: 20170428
  Serious: Yes (Other)
  Sender: FDA-Public Use
  Company Number: US-ABBVIE-17K-163-1855890-00

PATIENT
  Sex: Male

DRUGS (2)
  1. HUMIRA [Suspect]
     Active Substance: ADALIMUMAB
     Indication: PSORIATIC ARTHROPATHY
  2. HUMIRA [Suspect]
     Active Substance: ADALIMUMAB
     Indication: CROHN^S DISEASE
     Route: 058

REACTIONS (9)
  - Rash generalised [Recovering/Resolving]
  - Oedema peripheral [Recovering/Resolving]
  - Pyrexia [Recovered/Resolved]
  - Cholecystitis infective [Recovering/Resolving]
  - Pneumonia [Recovering/Resolving]
  - Spontaneous amputation [Unknown]
  - Chills [Recovered/Resolved]
  - Gangrene [Recovering/Resolving]
  - Extremity necrosis [Recovering/Resolving]

NARRATIVE: CASE EVENT DATE: 2016
